FAERS Safety Report 9553333 (Version 1)
Quarter: 2013Q3

REPORT INFORMATION
  Report Type: Spontaneous
  Country: US (occurrence: None)
  Receive Date: 20130724
  Receipt Date: 20130724
  Transmission Date: 20140515
  Serious: Yes (Other)
  Sender: FDA-Public Use
  Company Number: PHEH2012US022672

PATIENT
  Age: 69 Year
  Sex: Female

DRUGS (7)
  1. GLEEVEC [Suspect]
     Route: 048
  2. SUTENT (SUNITINIB MALATE) [Suspect]
     Route: 048
  3. TOPROL (METOPROLOL SUCCINATE) [Concomitant]
  4. SIMVASTATIN (SIMVASTATIN) [Concomitant]
  5. TRIAMTERENE (TRIAMTERENE) [Concomitant]
  6. LORAZEPAM (LORAZEPAM) [Concomitant]
  7. ZOPIDEM (ZOLPIDEM TARTRATE) [Concomitant]

REACTIONS (15)
  - Palmar-plantar erythrodysaesthesia syndrome [None]
  - Melanocytic naevus [None]
  - Bladder disorder [None]
  - Madarosis [None]
  - Hair colour changes [None]
  - Mucosal inflammation [None]
  - Cough [None]
  - Impaired healing [None]
  - Nasal congestion [None]
  - Drug ineffective [None]
  - Eyelid oedema [None]
  - Diarrhoea [None]
  - Gastrooesophageal reflux disease [None]
  - Onychoclasis [None]
  - Pain in extremity [None]
